FAERS Safety Report 4406646-9 (Version None)
Quarter: 2004Q3

REPORT INFORMATION
  Report Type: 
  Country: None (occurrence: None)
  Receive Date: 20040720
  Receipt Date: 20040423
  Transmission Date: 20050211
  Serious: Yes (Hospitalization, Disabling)
  Sender: FDA-Public Use
  Company Number: 2000-BL-00184 (1)

PATIENT
  Age: 19 Year
  Sex: Male

DRUGS (6)
  1. VIRAMUNE [Suspect]
     Indication: HIV INFECTION
     Dosage: SEE IMAGE
     Route: 048
     Dates: start: 20000621, end: 20000603
  2. VIRAMUNE [Suspect]
     Indication: HIV INFECTION
     Dosage: SEE IMAGE
     Route: 048
     Dates: start: 20000609, end: 20000620
  3. EFAVIRENZ (EFAVIRENZ) [Suspect]
     Indication: HIV INFECTION
     Dosage: 600 MG (200 MG, 3 IN 24 HR) PO
     Route: 048
     Dates: start: 20000608, end: 20000620
  4. EFAVIRENZ (EFAVIRENZ) [Suspect]
     Indication: HIV INFECTION
     Dosage: 600 MG (200 MG, 3 IN 24 HR) PO
     Route: 048
     Dates: start: 20000621, end: 20000703
  5. STAVUDINE [Concomitant]
  6. LAMIVUDINE [Concomitant]

REACTIONS (4)
  - AMNESIA [None]
  - CACHEXIA [None]
  - CONFUSIONAL STATE [None]
  - DRUG SCREEN POSITIVE [None]
